FAERS Safety Report 8505338-4 (Version None)
Quarter: 2012Q3

REPORT INFORMATION
  Report Type: 
  Country: None (occurrence: None)
  Receive Date: 20120712
  Receipt Date: 20120709
  Transmission Date: 20120928
  Serious: Yes (Disabling)
  Sender: FDA-Public Use
  Company Number: IE-PFIZER INC-2012149399

PATIENT
  Age: 39 Year
  Sex: Female

DRUGS (2)
  1. DIFLUCAN [Suspect]
     Dosage: 50 MG, 1X/DAY
     Dates: start: 20120618, end: 20120620
  2. VINCRISTINE SULFATE [Interacting]
     Indication: CHEMOTHERAPY
     Dosage: 0.9 MG, DAILY FOR 4/7 DAYS
     Dates: end: 20120616

REACTIONS (2)
  - NEUROPATHY PERIPHERAL [None]
  - DRUG INTERACTION [None]
